FAERS Safety Report 8164219-9 (Version None)
Quarter: 2012Q1

REPORT INFORMATION
  Report Type: 
  Country: None (occurrence: None)
  Receive Date: 20120224
  Receipt Date: 20120213
  Transmission Date: 20120608
  Serious: Yes (Other)
  Sender: FDA-Public Use
  Company Number: US-ELI_LILLY_AND_COMPANY-US201202003870

PATIENT
  Sex: Female

DRUGS (2)
  1. LANTUS [Concomitant]
     Dosage: UNK
  2. HUMALOG [Suspect]
     Indication: DIABETES MELLITUS
     Dosage: 20 U, TID
     Dates: start: 20110101

REACTIONS (6)
  - FEAR [None]
  - GENERAL PHYSICAL HEALTH DETERIORATION [None]
  - CARDIAC FAILURE CONGESTIVE [None]
  - EXPIRED DRUG ADMINISTERED [None]
  - VISUAL IMPAIRMENT [None]
  - DRUG DISPENSING ERROR [None]
